FAERS Safety Report 7408893-0 (Version None)
Quarter: 2011Q2

REPORT INFORMATION
  Report Type: 
  Country: None (occurrence: None)
  Receive Date: 20110412
  Receipt Date: 20110408
  Transmission Date: 20111010
  Serious: Yes (Death)
  Sender: FDA-Public Use
  Company Number: PHHY2011IN29305

PATIENT
  Age: 58 Year
  Sex: Female

DRUGS (2)
  1. FEMARA [Suspect]
     Dosage: 1 DF/DAY
  2. ZOMETA [Suspect]
     Dosage: 4 MG/5ML, ONCE IN 06 MONTHS

REACTIONS (1)
  - DISEASE PROGRESSION [None]
